FAERS Safety Report 4277518-8 (Version None)
Quarter: 2004Q1

REPORT INFORMATION
  Report Type: 
  Country: None (occurrence: None)
  Receive Date: 20040122
  Receipt Date: 20040112
  Transmission Date: 20041129
  Serious: Yes (Hospitalization)
  Sender: FDA-Public Use
  Company Number: FR-BRISTOL-MYERS SQUIBB COMPANY-12477352

PATIENT
  Age: 67 Year
  Sex: Female

DRUGS (11)
  1. TAXOL [Suspect]
     Indication: BRONCHIAL CARCINOMA
     Route: 042
     Dates: start: 20030617, end: 20030617
  2. GARDENAL [Concomitant]
  3. MEPRONIZINE [Concomitant]
  4. ATARAX [Concomitant]
  5. OXYGEN [Concomitant]
  6. EPO [Concomitant]
  7. SOLU-MEDROL [Concomitant]
     Indication: PREMEDICATION
     Route: 042
  8. POLARAMINE [Concomitant]
     Indication: PREMEDICATION
     Route: 042
     Dates: start: 20030617, end: 20030617
  9. NAVOBAN [Concomitant]
     Indication: PREMEDICATION
     Route: 042
     Dates: start: 20030617, end: 20030617
  10. RANIPLEX [Concomitant]
     Indication: PREMEDICATION
     Route: 042
     Dates: start: 20030617, end: 20030617
  11. SYNEDIL [Concomitant]
     Indication: PREMEDICATION
     Route: 048
     Dates: start: 20030617, end: 20030617

REACTIONS (4)
  - BLOOD PRESSURE INCREASED [None]
  - BRONCHOSPASM [None]
  - CYANOSIS [None]
  - RESPIRATORY DISTRESS [None]
